FAERS Safety Report 10515727 (Version 1)
Quarter: 2014Q4

REPORT INFORMATION
  Report Type: Spontaneous
  Country: FR (occurrence: LU)
  Receive Date: 20141014
  Receipt Date: 20141014
  Transmission Date: 20150528
  Serious: Yes (Hospitalization)
  Sender: FDA-Public Use
  Company Number: FR-TEVA-513407ISR

PATIENT
  Age: 59 Year
  Sex: Male

DRUGS (5)
  1. LEVOFLOXACINE [Interacting]
     Active Substance: LEVOFLOXACIN
     Route: 048
     Dates: start: 20140324
  2. INDOMET RATIOPHARM [Interacting]
     Active Substance: INDOMETHACIN
     Route: 048
     Dates: start: 20140320, end: 20140321
  3. AMPICILLIN AND SULBACTAM [Interacting]
     Active Substance: AMPICILLIN SODIUM\SULBACTAM SODIUM
     Dates: start: 20140321, end: 20140323
  4. ROXITHROMYCINE [Interacting]
     Active Substance: ROXITHROMYCIN
     Route: 048
     Dates: start: 20140321, end: 20140323
  5. COTRIMOXAZOLE [Suspect]
     Active Substance: SULFAMETHOXAZOLE\TRIMETHOPRIM
     Indication: BRONCHITIS
     Dates: start: 20140315, end: 20140321

REACTIONS (5)
  - Systemic inflammatory response syndrome [Recovered/Resolved]
  - Oedema peripheral [Recovered/Resolved]
  - Erythema multiforme [Recovered/Resolved]
  - Eosinophilia [Recovered/Resolved]
  - Dermatitis bullous [Recovered/Resolved]

NARRATIVE: CASE EVENT DATE: 20140322
